FAERS Safety Report 13520668 (Version 2)
Quarter: 2017Q3

REPORT INFORMATION
  Report Type: Report from Study
  Country: US (occurrence: US)
  Receive Date: 20170508
  Receipt Date: 20170703
  Transmission Date: 20171127
  Serious: No
  Sender: FDA-Public Use
  Company Number: US-ALEXION PHARMACEUTICALS INC.-A201704751

PATIENT
  Sex: Female
  Weight: 87 kg

DRUGS (1)
  1. STRENSIQ [Suspect]
     Active Substance: ASFOTASE ALFA
     Indication: HYPOPHOSPHATASIA
     Route: 058

REACTIONS (4)
  - Sinus pain [Unknown]
  - Weight increased [Unknown]
  - Oropharyngeal pain [Unknown]
  - Tympanic membrane perforation [Unknown]
